FAERS Safety Report 7920053-3 (Version None)
Quarter: 2011Q4

REPORT INFORMATION
  Report Type: 
  Country: None (occurrence: None)
  Receive Date: 20111117
  Receipt Date: 20111107
  Transmission Date: 20120403
  Serious: Yes (Hospitalization)
  Sender: FDA-Public Use
  Company Number: US-BAYER-2011-081764

PATIENT
  Age: 34 Year
  Sex: Female
  Weight: 104.31 kg

DRUGS (1)
  1. YAZ [Suspect]
     Indication: CONTRACEPTION
     Dosage: UNK
     Dates: start: 20061109, end: 20091230

REACTIONS (4)
  - MESENTERIC VEIN THROMBOSIS [None]
  - PAIN [None]
  - INJURY [None]
  - NEPHROLITHIASIS [None]
